FAERS Safety Report 5339691-X (Version None)
Quarter: 2007Q2

REPORT INFORMATION
  Report Type: 
  Country: None (occurrence: None)
  Receive Date: 20070525
  Receipt Date: 20070516
  Transmission Date: 20071010
  Serious: Yes (Disabling, Other)
  Sender: FDA-Public Use
  Company Number: 16550

PATIENT
  Age: 19 Year
  Sex: Female

DRUGS (13)
  1. CYTARABINE [Suspect]
     Indication: B-CELL TYPE ACUTE LEUKAEMIA
     Dosage: 3 G/M2 BID IV
     Route: 042
  2. METHOTREXATE [Suspect]
     Indication: B-CELL TYPE ACUTE LEUKAEMIA
     Dosage: 1 G/M2 ONCE IV
     Route: 042
  3. METHOTREXATE [Suspect]
     Indication: B-CELL TYPE ACUTE LEUKAEMIA
  4. DEPOCYT [Suspect]
     Indication: B-CELL TYPE ACUTE LEUKAEMIA
     Dosage: 50 MG   IT
     Route: 038
  5. DEPOCYT [Suspect]
     Indication: B-CELL TYPE ACUTE LEUKAEMIA
     Dosage: 25 MG
  6. FRACTIONATED CYCLOPHOSPHAMIDE [Concomitant]
  7. VINCRISTINE [Concomitant]
  8. DOXORUBICIN HCL [Concomitant]
  9. DEXAMETHASONE 0.5MG TAB [Concomitant]
  10. NEUPOGEN [Concomitant]
  11. ANTIBIOTICS [Concomitant]
  12. MERCAPTOPURINE [Concomitant]
  13. PREDNISONE TAB [Concomitant]

REACTIONS (4)
  - BENIGN INTRACRANIAL HYPERTENSION [None]
  - DRUG INTERACTION [None]
  - NEUROTOXICITY [None]
  - VISUAL ACUITY REDUCED [None]
